FAERS Safety Report 4647155-1 (Version None)
Quarter: 2005Q2

REPORT INFORMATION
  Report Type: 
  Country: None (occurrence: None)
  Receive Date: 20050426
  Receipt Date: 20050418
  Transmission Date: 20051028
  Serious: Yes (Life-Threatening)
  Sender: FDA-Public Use
  Company Number: 2005AC00573

PATIENT
  Age: 40 Year
  Sex: Male
  Weight: 75 kg

DRUGS (5)
  1. PROPOFOL [Suspect]
     Indication: GENERAL ANAESTHESIA
     Dosage: DURING SURGERY
  2. PROPOFOL [Suspect]
     Indication: GENERAL ANAESTHESIA
     Dosage: 3 MG/KG/HR IV
     Route: 042
  3. VERCURONIUM [Concomitant]
  4. MIDAZOLAM HCL [Concomitant]
  5. SUFENTANIL CITRATE [Concomitant]

REACTIONS (14)
  - BLOOD CREATINE PHOSPHOKINASE INCREASED [None]
  - DRUG TOXICITY [None]
  - HAEMODIALYSIS [None]
  - HYPERKALAEMIA [None]
  - HYPERTHERMIA MALIGNANT [None]
  - METABOLIC ACIDOSIS [None]
  - METABOLIC DISORDER [None]
  - MYOPATHY [None]
  - PATHOGEN RESISTANCE [None]
  - PROCEDURAL COMPLICATION [None]
  - PSEUDOMONAS INFECTION [None]
  - PYREXIA [None]
  - RENAL FAILURE [None]
  - SEPTIC SHOCK [None]
